FAERS Safety Report 6757703-3 (Version None)
Quarter: 2010Q2

REPORT INFORMATION
  Report Type: 
  Country: None (occurrence: None)
  Receive Date: 20100607
  Receipt Date: 20100528
  Transmission Date: 20101027
  Serious: Yes (Other)
  Sender: FDA-Public Use
  Company Number: US-NOVOPROD-309309

PATIENT
  Sex: Female
  Weight: 82.313 kg

DRUGS (15)
  1. VICTOZA [Suspect]
     Indication: TYPE 2 DIABETES MELLITUS
     Dosage: 1.2 MG, QD
     Route: 058
     Dates: start: 20100422
  2. FUROSEMIDE [Concomitant]
     Indication: HYPERTENSION
     Dosage: 40 MG, QD
  3. POTASSIUM CHLORIDE [Concomitant]
     Indication: DRUG USE FOR UNKNOWN INDICATION
     Dosage: 20 MEQ, QD
  4. METFORMIN [Concomitant]
     Indication: TYPE 2 DIABETES MELLITUS
     Dosage: 1000 MG, BID
  5. LAMICTAL [Concomitant]
     Indication: BIPOLAR DISORDER
     Dosage: 400 MG, BID
  6. ABILIFY [Concomitant]
     Indication: BIPOLAR DISORDER
     Dosage: 20 MG, QD
  7. ZOLOFT [Concomitant]
     Indication: BIPOLAR DISORDER
     Dosage: 100 MG, QD
  8. KLONOPIN [Concomitant]
     Indication: BIPOLAR DISORDER
     Dosage: 0.5 MG, 3 TABLETS AT BEDTIME
  9. VITAMIN B12                        /00056201/ [Concomitant]
     Indication: MALABSORPTION
     Dosage: DAILY
  10. CALFATE [Concomitant]
     Indication: DRUG USE FOR UNKNOWN INDICATION
     Dosage: DAILY
  11. MULTIVITAMIN                       /00097801/ [Concomitant]
     Indication: MALABSORPTION
     Dosage: DAILY
  12. VITAMIN A [Concomitant]
     Indication: VITAMIN D DEFICIENCY
     Dosage: 1000 U, BID THEN 50,000 U EVERY OTHER WEEK
  13. LITHIUM [Concomitant]
     Indication: BIPOLAR DISORDER
     Dosage: 600 MG, BID
  14. LEVOTHYROXINE SODIUM [Concomitant]
     Indication: HYPOTHYROIDISM
     Dosage: UNK
  15. LEVOTHYROXINE SODIUM [Concomitant]
     Dosage: 125 UG, QD

REACTIONS (11)
  - ASTHENIA [None]
  - ERYTHEMA [None]
  - FATIGUE [None]
  - HYPOKALAEMIA [None]
  - LYMPHADENOPATHY [None]
  - MYALGIA [None]
  - OTITIS EXTERNA [None]
  - PAIN OF SKIN [None]
  - SIALOADENITIS [None]
  - SKIN EXFOLIATION [None]
  - WEIGHT DECREASED [None]
